FAERS Safety Report 10023578 (Version 1)
Quarter: 2014Q1

REPORT INFORMATION
  Report Type: Spontaneous
  Country: US (occurrence: US)
  Receive Date: 20140320
  Receipt Date: 20140320
  Transmission Date: 20141002
  Serious: No
  Sender: FDA-Public Use
  Company Number: US-MYLANLABS-2013S1029066

PATIENT
  Sex: Male

DRUGS (1)
  1. SOTALOL HYDROCHLORIDE TABLETS (AF) [Suspect]
     Indication: ATRIAL FIBRILLATION
     Route: 048
     Dates: start: 201305

REACTIONS (5)
  - Heart rate decreased [Not Recovered/Not Resolved]
  - Agitation [Not Recovered/Not Resolved]
  - Lacrimation increased [Not Recovered/Not Resolved]
  - Fatigue [Not Recovered/Not Resolved]
  - Reaction to drug excipients [Not Recovered/Not Resolved]
